FAERS Safety Report 12329935 (Version 1)
Quarter: 2016Q2

REPORT INFORMATION
  Report Type: Spontaneous
  Country: CH (occurrence: CH)
  Receive Date: 20160504
  Receipt Date: 20160504
  Transmission Date: 20160815
  Serious: Yes (Hospitalization)
  Sender: FDA-Public Use
  Company Number: CH-ABBVIE-16K-151-1613917-00

PATIENT
  Age: 58 Year
  Sex: Male

DRUGS (12)
  1. ASPIRIN CARDIO [Concomitant]
     Active Substance: ASPIRIN
     Indication: PRODUCT USED FOR UNKNOWN INDICATION
     Dosage: ONE TABLET EVERY MORNING
     Route: 048
     Dates: start: 20160322
  2. ESOMEP [Concomitant]
     Active Substance: ESOMEPRAZOLE
     Indication: PRODUCT USED FOR UNKNOWN INDICATION
     Dosage: ONCE EVERY MORNING
     Route: 048
     Dates: start: 20160310
  3. ATORVA [Concomitant]
     Indication: PRODUCT USED FOR UNKNOWN INDICATION
     Dosage: ONCE EVERY MORNING
     Route: 048
     Dates: start: 20160310
  4. ESOMEP [Concomitant]
     Active Substance: ESOMEPRAZOLE
     Dosage: ONCE EVERY MORNING
     Route: 048
     Dates: start: 20160322
  5. ATACAND [Concomitant]
     Active Substance: CANDESARTAN CILEXETIL
     Indication: PRODUCT USED FOR UNKNOWN INDICATION
     Dosage: ONCE EVERY MORNING
     Route: 048
     Dates: start: 20160310
  6. ATORVA [Concomitant]
     Dosage: ONCE EVERY MORNING
     Route: 048
     Dates: start: 20160322
  7. CONCOR [Concomitant]
     Active Substance: BISOPROLOL FUMARATE
     Indication: PRODUCT USED FOR UNKNOWN INDICATION
     Dosage: ONCE EVERY MORNING
     Route: 048
     Dates: start: 20160310
  8. PETHIDIN [Suspect]
     Active Substance: MEPERIDINE
     Indication: ANALGESIC THERAPY
     Dosage: DURING HOSPITAL STAY
     Route: 065
     Dates: start: 201603, end: 201603
  9. ATACAND [Concomitant]
     Active Substance: CANDESARTAN CILEXETIL
     Dosage: ONCE EVERY MORNING
     Route: 048
     Dates: start: 20160322
  10. ASPIRIN CARDIO [Concomitant]
     Active Substance: ASPIRIN
     Dosage: ONE TABLET EVERY MORNING
     Route: 048
     Dates: start: 20160410
  11. HUMIRA [Suspect]
     Active Substance: ADALIMUMAB
     Indication: PSORIASIS
     Dosage: IN THE MORNING
     Route: 058
     Dates: start: 201411
  12. CONCOR [Concomitant]
     Active Substance: BISOPROLOL FUMARATE
     Dosage: ONCE EVERY MORNING
     Route: 048
     Dates: start: 20160322

REACTIONS (24)
  - Drug dependence [Unknown]
  - Inflammatory marker increased [Recovering/Resolving]
  - Mesenteric vascular occlusion [Unknown]
  - Pancreatitis [Unknown]
  - Hypertension [Unknown]
  - Pyrexia [Unknown]
  - Hepatic fibrosis marker increased [Recovering/Resolving]
  - Bile duct stenosis [Unknown]
  - Melanocytic naevus [Recovered/Resolved]
  - Pancreatitis chronic [Recovered/Resolved]
  - Slow response to stimuli [Unknown]
  - Pneumobilia [Unknown]
  - Pancreatitis chronic [Recovered/Resolved]
  - Decreased appetite [Unknown]
  - Dilatation intrahepatic duct acquired [Unknown]
  - Blood cholesterol increased [Unknown]
  - Pancreatitis chronic [Recovered/Resolved]
  - Vein collapse [Unknown]
  - Gastrointestinal oedema [Unknown]
  - Hypoglycaemia [Unknown]
  - Pancreatitis chronic [Recovered/Resolved]
  - Abdominal pain upper [Unknown]
  - Pancreatitis chronic [Recovered/Resolved]
  - Abdominal pain upper [Unknown]

NARRATIVE: CASE EVENT DATE: 201501
